FAERS Safety Report 25624391 (Version 1)
Quarter: 2025Q3

REPORT INFORMATION
  Report Type: Spontaneous
  Country: CN (occurrence: CN)
  Receive Date: 20250730
  Receipt Date: 20250730
  Transmission Date: 20251020
  Serious: Yes (Other)
  Sender: CALLIDITAS THERAPEUTICS AB
  Company Number: CN-EVEREST-20250700383

PATIENT
  Age: 55 Year
  Sex: Female
  Weight: 44.5 kg

DRUGS (2)
  1. BUDESONIDE [Suspect]
     Active Substance: BUDESONIDE
     Indication: IgA nephropathy
     Dosage: 16 MG, QD
     Route: 048
     Dates: start: 20250430, end: 20250715
  2. BUDESONIDE [Suspect]
     Active Substance: BUDESONIDE
     Indication: IgA nephropathy
     Dosage: 8 MG, QD
     Route: 048
     Dates: start: 20250716

REACTIONS (2)
  - Steroid diabetes [Unknown]
  - Underdose [Unknown]

NARRATIVE: CASE EVENT DATE: 20250714
